FAERS Safety Report 4658510-8 (Version None)
Quarter: 2005Q2

REPORT INFORMATION
  Report Type: 
  Country: None (occurrence: None)
  Receive Date: 20050509
  Receipt Date: 20050505
  Transmission Date: 20051028
  Serious: Yes (Death, Hospitalization)
  Sender: FDA-Public Use
  Company Number: 200510313BWH

PATIENT

DRUGS (1)
  1. AVELOX [Suspect]

REACTIONS (2)
  - CARDIAC ARREST [None]
  - TORSADE DE POINTES [None]
